FAERS Safety Report 21063323 (Version 1)
Quarter: 2022Q3

REPORT INFORMATION
  Report Type: Report from Study
  Country: US (occurrence: US)
  Receive Date: 20220711
  Receipt Date: 20220711
  Transmission Date: 20221027
  Serious: Yes (Death)
  Sender: FDA-Public Use
  Company Number: US-JNJFOC-20220709979

PATIENT
  Age: 8 Month
  Sex: Female

DRUGS (1)
  1. ACETAMINOPHEN [Suspect]
     Active Substance: ACETAMINOPHEN
     Indication: Product used for unknown indication
     Route: 065
     Dates: start: 2007

REACTIONS (4)
  - Toxicity to various agents [Fatal]
  - Incorrect dose administered [Fatal]
  - Hypoxic-ischaemic encephalopathy [Fatal]
  - Sudden infant death syndrome [Fatal]

NARRATIVE: CASE EVENT DATE: 20070101
